FAERS Safety Report 13673801 (Version 1)
Quarter: 2017Q2

REPORT INFORMATION
  Report Type: Spontaneous
  Country: SE (occurrence: SE)
  Receive Date: 20170621
  Receipt Date: 20170621
  Transmission Date: 20170830
  Serious: Yes (Death, Hospitalization)
  Sender: FDA-Public Use
  Company Number: SE-TEVA-779272ROM

PATIENT
  Age: 57 Year
  Sex: Female

DRUGS (5)
  1. PREDNISOLONE. [Suspect]
     Active Substance: PREDNISOLONE
     Indication: MYELOFIBROSIS
     Dosage: 30 MG DAILY
     Route: 065
  2. CORTICOTROPIN [Suspect]
     Active Substance: CORTICOTROPIN
     Indication: FOCAL SEGMENTAL GLOMERULOSCLEROSIS
     Route: 065
  3. PREDNISOLONE. [Suspect]
     Active Substance: PREDNISOLONE
     Indication: FOCAL SEGMENTAL GLOMERULOSCLEROSIS
     Route: 065
  4. TACROLIMUS. [Suspect]
     Active Substance: TACROLIMUS
     Indication: FOCAL SEGMENTAL GLOMERULOSCLEROSIS
     Route: 065
  5. RUXOLITINIB [Suspect]
     Active Substance: RUXOLITINIB
     Indication: MYELOFIBROSIS
     Route: 065

REACTIONS (2)
  - Epstein-Barr virus infection [Fatal]
  - Epstein-Barr virus associated lymphoproliferative disorder [Fatal]
